FAERS Safety Report 9447718 (Version 1)
Quarter: 2013Q3

REPORT INFORMATION
  Report Type: Spontaneous
  Country: GB (occurrence: GB)
  Receive Date: 20130808
  Receipt Date: 20130808
  Transmission Date: 20140515
  Serious: Yes (Disabling)
  Sender: FDA-Public Use
  Company Number: GB-JNJFOC-20130800448

PATIENT
  Age: 79 Year
  Sex: Female
  Weight: 64 kg

DRUGS (3)
  1. XARELTO [Suspect]
     Indication: RETINAL VEIN OCCLUSION
     Route: 048
     Dates: start: 20130430
  2. CLOPIDOGREL [Concomitant]
     Dates: start: 20130402, end: 20130527
  3. BENDROFLUMETHIAZIDE [Concomitant]
     Dates: start: 20130411, end: 20130509

REACTIONS (4)
  - Constipation [Not Recovered/Not Resolved]
  - Dizziness [Not Recovered/Not Resolved]
  - Fatigue [Not Recovered/Not Resolved]
  - Headache [Not Recovered/Not Resolved]
